FAERS Safety Report 6892307-3 (Version None)
Quarter: 2010Q3

REPORT INFORMATION
  Report Type: 
  Country: None (occurrence: None)
  Receive Date: 20100731
  Receipt Date: 20080401
  Transmission Date: 20110219
  Serious: No
  Sender: FDA-Public Use
  Company Number: US-PFIZER INC-2008030472

PATIENT
  Sex: Female
  Weight: 29.5 kg

DRUGS (2)
  1. NEURONTIN [Suspect]
     Indication: CONVULSION
     Dates: start: 20080322
  2. NEURONTIN [Suspect]
     Indication: MIGRAINE

REACTIONS (4)
  - ABNORMAL BEHAVIOUR [None]
  - FATIGUE [None]
  - INITIAL INSOMNIA [None]
  - NASOPHARYNGITIS [None]
